FAERS Safety Report 4648194-7 (Version None)
Quarter: 2005Q2

REPORT INFORMATION
  Report Type: 
  Country: None (occurrence: None)
  Receive Date: 20050331
  Receipt Date: 20050111
  Transmission Date: 20051028
  Serious: No
  Sender: FDA-Public Use
  Company Number: 05P-163-0286004-00

PATIENT
  Sex: Female

DRUGS (3)
  1. HUMIRA [Suspect]
     Indication: RHEUMATOID ARTHRITIS
     Dosage: 40 MG, SUBCUTANEOUS
     Route: 058
     Dates: start: 20041001
  2. ANTI-HISTAMINE TAB [Concomitant]
  3. METHOTREXATE [Concomitant]

REACTIONS (3)
  - COUGH [None]
  - DYSPNOEA [None]
  - NASAL SINUS DRAINAGE [None]
